FAERS Safety Report 5373174-6 (Version None)
Quarter: 2007Q2

REPORT INFORMATION
  Report Type: 
  Country: None (occurrence: None)
  Receive Date: 20070627
  Receipt Date: 20070621
  Transmission Date: 20071010
  Serious: Yes (Life-Threatening, Hospitalization, Other)
  Sender: FDA-Public Use
  Company Number: DE-PFIZER INC-2007051435

PATIENT
  Sex: Male

DRUGS (7)
  1. CELEBREX [Suspect]
     Indication: COMPRESSION FRACTURE
     Route: 048
     Dates: start: 20070201, end: 20070201
  2. SANDIMMUNE [Interacting]
     Indication: RENAL TRANSPLANT
     Route: 048
  3. ASPIRIN [Concomitant]
     Route: 048
  4. INSULIN BASAL [Concomitant]
  5. OXIS [Concomitant]
  6. METOPROLOL SUCCINATE [Concomitant]
     Route: 048
  7. ALL OTHER THERAPEUTIC PRODUCTS [Concomitant]

REACTIONS (6)
  - DRUG INTERACTION [None]
  - GASTROINTESTINAL HAEMORRHAGE [None]
  - HYPONATRAEMIA [None]
  - RENAL FAILURE ACUTE [None]
  - URINARY RETENTION [None]
  - URINARY TRACT INFECTION [None]
